FAERS Safety Report 8118953-7 (Version None)
Quarter: 2012Q1

REPORT INFORMATION
  Report Type: 
  Country: None (occurrence: None)
  Receive Date: 20120207
  Receipt Date: 20120202
  Transmission Date: 20120608
  Serious: No
  Sender: FDA-Public Use
  Company Number: US-PFIZER INC-2012029516

PATIENT
  Sex: Female

DRUGS (5)
  1. VIMPAT [Concomitant]
     Dosage: UNK
  2. METHIMAZOLE [Concomitant]
     Indication: HYPERTHYROIDISM
     Dosage: UNK
  3. CELEBREX [Concomitant]
     Dosage: UNK
  4. LYRICA [Suspect]
     Indication: PAIN
     Dosage: 100 MG, 3X/DAY
     Route: 048
     Dates: start: 20050101
  5. KEPPRA [Concomitant]
     Indication: CONVULSION
     Dosage: UNK

REACTIONS (2)
  - PARAESTHESIA [None]
  - FEELING ABNORMAL [None]
